FAERS Safety Report 18610909 (Version 1)
Quarter: 2020Q4

REPORT INFORMATION
  Report Type: Spontaneous
  Country: IN (occurrence: IN)
  Receive Date: 20201214
  Receipt Date: 20201214
  Transmission Date: 20210114
  Serious: Yes (Hospitalization)
  Sender: FDA-Public Use
  Company Number: IN-CELLTRION-2020-IN-000215

PATIENT
  Age: 80 Year
  Sex: Male

DRUGS (4)
  1. DIVALPROEX (NON-SPECIFIC) [Suspect]
     Active Substance: DIVALPROEX SODIUM
     Indication: NEUROPSYCHIATRIC SYMPTOMS
     Dosage: 125 MG ONCE DAILY
  2. DUOLIN [Concomitant]
  3. QUETIAPINE. [Concomitant]
     Active Substance: QUETIAPINE
     Indication: NEUROPSYCHIATRIC SYMPTOMS
     Dosage: 50 MG DAILY
  4. ENALAPRIL [Concomitant]
     Active Substance: ENALAPRIL
     Dosage: 5 MG DAILY

REACTIONS (2)
  - Normal pressure hydrocephalus [Recovered/Resolved]
  - Encephalopathy [Recovered/Resolved]
